FAERS Safety Report 17295032 (Version 1)
Quarter: 2020Q1

REPORT INFORMATION
  Report Type: Spontaneous
  Country: DE (occurrence: DE)
  Receive Date: 20200121
  Receipt Date: 20200121
  Transmission Date: 20200409
  Serious: Yes (Other)
  Sender: FDA-Public Use
  Company Number: DE-BAYER-2019-082580

PATIENT
  Age: 59 Year
  Sex: Male
  Weight: 82 kg

DRUGS (10)
  1. CIPROFLOXACIN MONOHYDROCHLORIDE [Suspect]
     Active Substance: CIPROFLOXACIN
     Indication: PRODUCT USED FOR UNKNOWN INDICATION
  2. LEVOFLOXACIN. [Suspect]
     Active Substance: LEVOFLOXACIN
     Indication: BACTERIAL INFECTION
     Dosage: 0.5 DF, QD
     Route: 065
     Dates: end: 20180505
  3. AMOXI-CLAVULAN [Concomitant]
     Indication: BACTERIAL INFECTION
  4. CIPROFLOXACIN MONOHYDROCHLORIDE [Suspect]
     Active Substance: CIPROFLOXACIN
     Indication: PROSTATE INFECTION
     Dosage: 1 OT, QD (10 DAYS / ONCE PER DAY)
     Route: 048
     Dates: start: 20180518
  5. LEVOFLOXACIN. [Suspect]
     Active Substance: LEVOFLOXACIN
     Indication: BACTERIAL PROSTATITIS
     Dosage: 1 DF, QD
     Route: 065
     Dates: start: 20180427
  6. LEVOFLOXACIN. [Suspect]
     Active Substance: LEVOFLOXACIN
     Indication: BACTERIAL INFECTION
     Dosage: 1 OT, QD (10 DAYS / ONCE PER DAY, FIRST 500 MG THEN 250 MG)
     Route: 048
     Dates: start: 20180408, end: 201804
  7. AMOXI-CLAVULAN [Concomitant]
     Indication: PROSTATE INFECTION
     Dosage: 1 OT, QD (10 DAYS, 1 PER DAY)
     Route: 065
     Dates: start: 20180601, end: 201806
  8. AMOXI-CLAVULAN [Concomitant]
     Indication: PRODUCT USED FOR UNKNOWN INDICATION
  9. MOXIFLOXACIN ORAL [Suspect]
     Active Substance: MOXIFLOXACIN
     Indication: PRODUCT USED FOR UNKNOWN INDICATION
     Dosage: UNK
     Route: 048
     Dates: start: 20180408, end: 20180701
  10. PROSTAGUTT [Concomitant]
     Indication: ABDOMINAL PAIN UPPER

REACTIONS (34)
  - Tendon discomfort [Unknown]
  - Visual impairment [Not Recovered/Not Resolved]
  - Pruritus genital [Unknown]
  - Sexual dysfunction [Unknown]
  - Tendonitis [Recovering/Resolving]
  - Feeling abnormal [Unknown]
  - Prostatic disorder [Unknown]
  - Vision blurred [Not Recovered/Not Resolved]
  - Abdominal pain lower [Unknown]
  - Haematospermia [Unknown]
  - Joint swelling [Unknown]
  - Joint range of motion decreased [Recovering/Resolving]
  - Arthralgia [Not Recovered/Not Resolved]
  - Oedema peripheral [Unknown]
  - Pain in extremity [Recovering/Resolving]
  - Rotator cuff syndrome [Recovering/Resolving]
  - Arthralgia [Recovering/Resolving]
  - Polyarthritis [Recovering/Resolving]
  - Joint swelling [Recovering/Resolving]
  - Arthritis [Not Recovered/Not Resolved]
  - Musculoskeletal discomfort [Unknown]
  - Arthralgia [Unknown]
  - Pelvic pain [Unknown]
  - Lacrimation increased [Not Recovered/Not Resolved]
  - Arthritis [Unknown]
  - Arthritis [Unknown]
  - Tendonitis [Unknown]
  - Micturition urgency [Recovering/Resolving]
  - Myalgia [Unknown]
  - Diarrhoea [Recovered/Resolved]
  - Arthritis [Not Recovered/Not Resolved]
  - Diarrhoea [Recovering/Resolving]
  - Arthralgia [Recovering/Resolving]
  - Musculoskeletal pain [Unknown]

NARRATIVE: CASE EVENT DATE: 2018
